FAERS Safety Report 5161806-7 (Version None)
Quarter: 2006Q4

REPORT INFORMATION
  Report Type: 
  Country: None (occurrence: None)
  Receive Date: 20061130
  Receipt Date: 20060814
  Transmission Date: 20070319
  Serious: Yes (Other)
  Sender: FDA-Public Use
  Company Number: US-AMGEN-US190247

PATIENT
  Sex: Male
  Weight: 90.8 kg

DRUGS (5)
  1. PROCRIT [Suspect]
     Indication: ANAEMIA
     Route: 058
     Dates: start: 20060503, end: 20060720
  2. PEGASYS [Suspect]
     Indication: HEPATITIS C
     Route: 058
     Dates: start: 20050918, end: 20060820
  3. RIBAVIRIN [Suspect]
     Indication: HEPATITIS C
     Route: 048
     Dates: start: 20050918, end: 20060820
  4. ZOLOFT [Concomitant]
     Dates: start: 20060115
  5. LUNESTA [Concomitant]

REACTIONS (1)
  - DEEP VEIN THROMBOSIS [None]
